FAERS Safety Report 10222616 (Version 1)
Quarter: 2014Q2

REPORT INFORMATION
  Report Type: Spontaneous
  Country: IT (occurrence: IT)
  Receive Date: 20140606
  Receipt Date: 20140606
  Transmission Date: 20141212
  Serious: Yes (Hospitalization)
  Sender: FDA-Public Use
  Company Number: IT-WATSON-2013-25374

PATIENT
  Age: 53 Year
  Sex: Female

DRUGS (4)
  1. VOLTAREN (NOVARTIS FARMA SPA) [Suspect]
     Indication: PRODUCT USED FOR UNKNOWN INDICATION
     Route: 048
     Dates: start: 20130512, end: 20130512
  2. RIABAL (ISTITUTO BIOCHIMICO ITALIANO GIOVANNI LORENZINI SPA) [Suspect]
     Indication: PRODUCT USED FOR UNKNOWN INDICATION
     Route: 048
     Dates: start: 20130512, end: 20130512
  3. LORAZEPAM (UNKNOWN) [Suspect]
     Indication: PRODUCT USED FOR UNKNOWN INDICATION
     Route: 048
     Dates: start: 20130512, end: 20130512
  4. PANTOPRAZOLE [Concomitant]
     Indication: ADVERSE EVENT

REACTIONS (2)
  - Vomiting [Recovered/Resolved]
  - Sopor [Recovered/Resolved]
